FAERS Safety Report 24537356 (Version 1)
Quarter: 2024Q4

REPORT INFORMATION
  Report Type: Spontaneous
  Country: FR (occurrence: FR)
  Receive Date: 20241022
  Receipt Date: 20241022
  Transmission Date: 20250114
  Serious: Yes (Other)
  Sender: ORGANON
  Company Number: FR-ORGANON-O2410FRA001676

PATIENT
  Age: 43 Year
  Sex: Female

DRUGS (1)
  1. NEXPLANON [Suspect]
     Active Substance: ETONOGESTREL
     Dosage: 1 IMPLANT, IN LEFT ARM
     Route: 058
     Dates: start: 20210712

REACTIONS (6)
  - Endometriosis [Recovered/Resolved]
  - Device dislocation [Not Recovered/Not Resolved]
  - Pain [Unknown]
  - Hypomenorrhoea [Recovered/Resolved]
  - Complication associated with device [Not Recovered/Not Resolved]
  - Incorrect product administration duration [Unknown]

NARRATIVE: CASE EVENT DATE: 20210712
